FAERS Safety Report 9307902 (Version 2)
Quarter: 2013Q2

REPORT INFORMATION
  Report Type: Report from Study
  Country: US (occurrence: US)
  Receive Date: 20130524
  Receipt Date: 20130529
  Transmission Date: 20140414
  Serious: Yes (Other)
  Sender: FDA-Public Use
  Company Number: PHEH2013US011102

PATIENT
  Age: 6 Year
  Sex: Male

DRUGS (4)
  1. AFINITOR [Suspect]
     Indication: ASTROCYTOMA, LOW GRADE
     Dosage: 2.5 MG, QD
     Route: 048
     Dates: start: 201301, end: 20130502
  2. AFINITOR [Suspect]
     Dosage: 2.5 MG, QD
  3. LYSINE [Concomitant]
     Dosage: 500 MG, BID
  4. MELATONIN [Concomitant]
     Indication: SLEEP DISORDER

REACTIONS (4)
  - Unresponsive to stimuli [Recovered/Resolved]
  - Gastroenteritis viral [Unknown]
  - Hyperhidrosis [Recovered/Resolved]
  - Vomiting [Recovered/Resolved]
